FAERS Safety Report 9048521 (Version 1)
Quarter: 2013Q1

REPORT INFORMATION
  Report Type: Spontaneous
  Country: US (occurrence: None)
  Receive Date: 20130130
  Receipt Date: 20130130
  Transmission Date: 20140127
  Serious: Yes (Hospitalization)
  Sender: FDA-Public Use
  Company Number: None

PATIENT
  Age: 72 Year
  Sex: Female
  Weight: 113 kg

DRUGS (12)
  1. COUMADIN [Suspect]
     Indication: ATRIAL FIBRILLATION
     Dosage: 5MG TTHSS PO?CHRONIC
     Route: 048
  2. COUMADIN [Suspect]
     Indication: ATRIAL FIBRILLATION
     Dosage: 7.5MG MWF PO?CHRONIC
     Route: 048
  3. INSULIN [Concomitant]
  4. VIT D [Concomitant]
  5. PERCOCET [Concomitant]
  6. BUMEX [Concomitant]
  7. CELEXA [Concomitant]
  8. LIPITOR [Concomitant]
  9. TOPROL XL [Concomitant]
  10. DIGOXIN [Concomitant]
  11. LISINOPRIL [Concomitant]
  12. NEURONTIN [Concomitant]

REACTIONS (6)
  - Anaemia [None]
  - Occult blood positive [None]
  - Urinary tract infection [None]
  - Renal failure [None]
  - Small intestinal haemorrhage [None]
  - Acute myocardial infarction [None]
